FAERS Safety Report 5350562-5 (Version None)
Quarter: 2007Q2

REPORT INFORMATION
  Report Type: 
  Country: None (occurrence: None)
  Receive Date: 20070606
  Receipt Date: 20070522
  Transmission Date: 20071010
  Serious: Yes (Hospitalization, Other)
  Sender: FDA-Public Use
  Company Number: 37619

PATIENT
  Age: 53 Year
  Sex: Female

DRUGS (1)
  1. ETOPOSIDE [Suspect]
     Indication: BREAST CANCER
     Dosage: 50MG/DAY/ORAL
     Route: 048

REACTIONS (3)
  - LARGE INTESTINAL ULCER [None]
  - NO THERAPEUTIC RESPONSE [None]
  - PNEUMATOSIS INTESTINALIS [None]
